FAERS Safety Report 7469995-6 (Version None)
Quarter: 2011Q2

REPORT INFORMATION
  Report Type: 
  Country: None (occurrence: None)
  Receive Date: 20110510
  Receipt Date: 20110504
  Transmission Date: 20111010
  Serious: Yes (Death)
  Sender: FDA-Public Use
  Company Number: DE-ROCHE-775281

PATIENT
  Sex: Male
  Weight: 71 kg

DRUGS (3)
  1. AVASTIN [Suspect]
     Dosage: DOSE: 5
     Route: 065
     Dates: start: 20100830, end: 20110215
  2. NAVELBINE [Concomitant]
     Dates: start: 20100830, end: 20110215
  3. CISPLATIN [Concomitant]
     Dates: start: 20100830, end: 20110215

REACTIONS (2)
  - NO THERAPEUTIC RESPONSE [None]
  - NEOPLASM MALIGNANT [None]
